FAERS Safety Report 12902547 (Version 1)
Quarter: 2016Q4

REPORT INFORMATION
  Report Type: Spontaneous
  Country: GB (occurrence: GB)
  Receive Date: 20161102
  Receipt Date: 20161102
  Transmission Date: 20170207
  Serious: Yes (Other)
  Sender: FDA-Public Use
  Company Number: GB-TEVA-707670ACC

PATIENT
  Age: 49 Year
  Sex: Female

DRUGS (16)
  1. COPAXONE [Suspect]
     Active Substance: GLATIRAMER ACETATE
     Indication: MULTIPLE SCLEROSIS RELAPSE
     Dosage: 20 MILLIGRAM/MILLILITERS DAILY;
     Route: 058
     Dates: start: 201607
  2. ZOPICLONE [Concomitant]
     Active Substance: ZOPICLONE
  3. ROPINROLE [Concomitant]
  4. DIAZEPAM. [Concomitant]
     Active Substance: DIAZEPAM
     Dosage: AS REQUIRED
  5. DYMISTA [Concomitant]
     Active Substance: AZELASTINE HYDROCHLORIDE\FLUTICASONE PROPIONATE
  6. AMITRIPTYLLINE [Concomitant]
     Active Substance: AMITRIPTYLINE
  7. VANLALIC [Concomitant]
  8. OMEPRAZOLE. [Concomitant]
     Active Substance: OMEPRAZOLE
     Route: 048
  9. SATIVEX [Concomitant]
     Active Substance: NABIXIMOLS
  10. SUMATRIPTAN. [Concomitant]
     Active Substance: SUMATRIPTAN
  11. CETIRIZINE [Concomitant]
     Active Substance: CETIRIZINE HYDROCHLORIDE
  12. GABAPENTIN. [Concomitant]
     Active Substance: GABAPENTIN
  13. ATORVASTATIN [Concomitant]
     Active Substance: ATORVASTATIN
  14. CO-CODOMOL [Concomitant]
     Dosage: 30/500
  15. PROCHLOPERAZINE [Concomitant]
  16. HYDROXYZINE [Concomitant]
     Active Substance: HYDROXYZINE\HYDROXYZINE HYDROCHLORIDE

REACTIONS (2)
  - Memory impairment [Unknown]
  - Secondary progressive multiple sclerosis [Unknown]

NARRATIVE: CASE EVENT DATE: 20161001
